FAERS Safety Report 9099514 (Version 1)
Quarter: 2013Q1

REPORT INFORMATION
  Report Type: Report from Study
  Country: VE (occurrence: VE)
  Receive Date: 20130214
  Receipt Date: 20130214
  Transmission Date: 20140127
  Serious: Yes (Hospitalization)
  Sender: FDA-Public Use
  Company Number: VE-ABBOTT-13P-178-1047902-00

PATIENT
  Sex: Male
  Weight: 65 kg

DRUGS (1)
  1. HUMIRA [Suspect]
     Indication: PSORIASIS
     Dosage: 1 PREFILLED SYRINGE EVERY 15 DAYS
     Route: 058
     Dates: start: 20110516, end: 201112

REACTIONS (3)
  - Weight decreased [Unknown]
  - Aphasia [Unknown]
  - Blindness [Unknown]
